FAERS Safety Report 13000364 (Version 2)
Quarter: 2017Q2

REPORT INFORMATION
  Report Type: Report from Study
  Country: US (occurrence: US)
  Receive Date: 20161206
  Receipt Date: 20170511
  Transmission Date: 20170830
  Serious: No
  Sender: FDA-Public Use
  Company Number: US-ALEXION PHARMACEUTICALS INC.-A201609339

PATIENT
  Sex: Male

DRUGS (2)
  1. SOLIRIS [Suspect]
     Active Substance: ECULIZUMAB
     Indication: HAEMOLYTIC URAEMIC SYNDROME
     Route: 042
  2. ALUMINIUM PHOSPHATE [Concomitant]
     Active Substance: ALUMINUM PHOSPHATE
     Indication: BLOOD PHOSPHORUS INCREASED
     Dosage: FOR 1 MONTH
     Route: 065

REACTIONS (1)
  - Acne [Not Recovered/Not Resolved]
